FAERS Safety Report 12490900 (Version 1)
Quarter: 2016Q2

REPORT INFORMATION
  Report Type: Spontaneous
  Country: US (occurrence: US)
  Receive Date: 20160623
  Receipt Date: 20160623
  Transmission Date: 20160815
  Serious: No
  Sender: FDA-Public Use
  Company Number: US-AUROBINDO-AUR-APU-2015-10673

PATIENT
  Age: 63 Year
  Sex: Female

DRUGS (3)
  1. VITAMIN B12 [Concomitant]
     Active Substance: CYANOCOBALAMIN
     Indication: PRODUCT USED FOR UNKNOWN INDICATION
     Route: 065
  2. ZOLPIDEM TARTRATE TABLETS 10 MG [Suspect]
     Active Substance: ZOLPIDEM TARTRATE
     Indication: SLEEP DISORDER
     Dosage: 0.5 DF, ONCE A DAY AT BED TIME
     Route: 048
     Dates: start: 201504, end: 20151116
  3. LEVOTHYROXINE. [Concomitant]
     Active Substance: LEVOTHYROXINE
     Indication: PRODUCT USED FOR UNKNOWN INDICATION
     Route: 065

REACTIONS (6)
  - Abdominal pain upper [Recovered/Resolved]
  - Gastrooesophageal reflux disease [Recovered/Resolved]
  - Muscle tightness [Recovered/Resolved]
  - Eructation [Recovered/Resolved]
  - Dyspepsia [Recovered/Resolved]
  - Depression [Recovered/Resolved]
